FAERS Safety Report 4307245-X (Version None)
Quarter: 2004Q1

REPORT INFORMATION
  Report Type: 
  Country: None (occurrence: None)
  Receive Date: 20040226
  Receipt Date: 20040212
  Transmission Date: 20041129
  Serious: Yes (Death)
  Sender: FDA-Public Use
  Company Number: RS004201-USA

PATIENT
  Age: 78 Year
  Sex: Male

DRUGS (1)
  1. ACIPHEX [Suspect]
     Dosage: 20 MG, ORAL
     Route: 048

REACTIONS (1)
  - SEPSIS [None]
